FAERS Safety Report 17854266 (Version 2)
Quarter: 2021Q1

REPORT INFORMATION
  Report Type: Spontaneous
  Country: CA (occurrence: CA)
  Receive Date: 20200603
  Receipt Date: 20210219
  Transmission Date: 20210419
  Serious: Yes (Other)
  Sender: FDA-Public Use
  Company Number: CA-ORION CORPORATION ORION PHARMA-TREX2020-2161

PATIENT
  Age: 34 Year
  Sex: Male

DRUGS (5)
  1. METHOTREXATE (TRADE NAME UNKNOWN) [Suspect]
     Active Substance: METHOTREXATE
     Route: 065
  2. REMICADE [Concomitant]
     Active Substance: INFLIXIMAB
     Dosage: DOSE: 1000 (UNITS UNKNOWN)
     Route: 042
     Dates: end: 20210209
  3. METHOTREXATE (TRADE NAME UNKNOWN) [Suspect]
     Active Substance: METHOTREXATE
     Indication: PRODUCT USED FOR UNKNOWN INDICATION
     Dosage: 15 MG Q UNK
     Route: 048
  4. PREDNISONE. [Concomitant]
     Active Substance: PREDNISONE
     Dosage: 25 MG Q (TAPERING)
     Route: 065
  5. REMICADE [Concomitant]
     Active Substance: INFLIXIMAB
     Dosage: 1 CYCLICAL
     Route: 042

REACTIONS (3)
  - Colitis ulcerative [Unknown]
  - Hepatic lesion [Unknown]
  - Treatment failure [Unknown]
